FAERS Safety Report 5048117-5 (Version None)
Quarter: 2006Q2

REPORT INFORMATION
  Report Type: 
  Country: None (occurrence: None)
  Receive Date: 20060601
  Receipt Date: 20060320
  Transmission Date: 20061013
  Serious: No
  Sender: FDA-Public Use
  Company Number: 2006PV010603

PATIENT
  Age: 57 Year
  Sex: Female

DRUGS (5)
  1. BYETTA [Suspect]
     Indication: DIABETES MELLITUS NON-INSULIN-DEPENDENT
     Dosage: 5 MCG;QD;SC
     Route: 058
     Dates: start: 20060201
  2. NAPROXEN [Concomitant]
  3. XALATAN [Concomitant]
  4. PROPOXY [Concomitant]
  5. AMPICILLIN [Concomitant]

REACTIONS (2)
  - ANAEMIA [None]
  - SOMNOLENCE [None]
